FAERS Safety Report 8494689-8 (Version None)
Quarter: 2012Q3

REPORT INFORMATION
  Report Type: 
  Country: None (occurrence: None)
  Receive Date: 20120709
  Receipt Date: 20120702
  Transmission Date: 20120928
  Serious: Yes (Hospitalization)
  Sender: FDA-Public Use
  Company Number: US-BAYER-201034787NA

PATIENT
  Age: 17 Year
  Sex: Female

DRUGS (4)
  1. ZYRTEC [Concomitant]
  2. YASMIN [Suspect]
     Dosage: UNK
     Dates: start: 20070909, end: 20070923
  3. GARDASIL [Concomitant]
     Dosage: UNK
     Route: 030
     Dates: start: 20070718
  4. GARDASIL [Concomitant]
     Dosage: UNK
     Route: 030
     Dates: start: 20070919

REACTIONS (6)
  - DEEP VEIN THROMBOSIS [None]
  - PAIN IN EXTREMITY [None]
  - PAIN [None]
  - CHEST DISCOMFORT [None]
  - PULMONARY EMBOLISM [None]
  - OEDEMA PERIPHERAL [None]
